FAERS Safety Report 14981718 (Version 1)
Quarter: 2018Q2

REPORT INFORMATION
  Report Type: Spontaneous
  Country: US (occurrence: US)
  Receive Date: 20180607
  Receipt Date: 20180607
  Transmission Date: 20180711
  Serious: Yes (Other)
  Sender: FDA-Public Use
  Company Number: US-BEH-2018091294

PATIENT
  Sex: Female
  Weight: 58.96 kg

DRUGS (32)
  1. ZOFRAN [Concomitant]
     Active Substance: ONDANSETRON HYDROCHLORIDE
  2. ACIDOPHILUS [Concomitant]
     Active Substance: LACTOBACILLUS ACIDOPHILUS
  3. HIZENTRA [Suspect]
     Active Substance: HUMAN IMMUNOGLOBULIN G
     Dosage: UNK
     Route: 058
  4. DIPHENHYDRAMINE. [Concomitant]
     Active Substance: DIPHENHYDRAMINE
  5. CEFDINIR. [Concomitant]
     Active Substance: CEFDINIR
  6. LEXAPRO [Concomitant]
     Active Substance: ESCITALOPRAM OXALATE
  7. BENICAR [Concomitant]
     Active Substance: OLMESARTAN MEDOXOMIL
  8. LIDOCAINE. [Concomitant]
     Active Substance: LIDOCAINE
  9. NEXIUM [Concomitant]
     Active Substance: ESOMEPRAZOLE MAGNESIUM
  10. METHOCARBAMOL. [Concomitant]
     Active Substance: METHOCARBAMOL
  11. KETOCONAZOLE. [Concomitant]
     Active Substance: KETOCONAZOLE
  12. SOMA [Concomitant]
     Active Substance: CARISOPRODOL
  13. HIZENTRA [Suspect]
     Active Substance: HUMAN IMMUNOGLOBULIN G
     Dosage: 12 G, QW
     Route: 058
     Dates: start: 20110512
  14. LYRICA [Concomitant]
     Active Substance: PREGABALIN
  15. SINGULAIR [Concomitant]
     Active Substance: MONTELUKAST SODIUM
  16. COMBIVENT [Concomitant]
     Active Substance: ALBUTEROL SULFATE\IPRATROPIUM BROMIDE
  17. HIZENTRA [Suspect]
     Active Substance: HUMAN IMMUNOGLOBULIN G
     Indication: IMMUNODEFICIENCY COMMON VARIABLE
     Dosage: UNK
     Route: 058
  18. AMOXICILLIN. [Concomitant]
     Active Substance: AMOXICILLIN
  19. PEPCID                             /00305201/ [Concomitant]
     Active Substance: ALUMINUM HYDROXIDE\MAGNESIUM CARBONATE
  20. SYNTHROID [Concomitant]
     Active Substance: LEVOTHYROXINE SODIUM
  21. DIOVAN [Concomitant]
     Active Substance: VALSARTAN
  22. SYMBICORT [Concomitant]
     Active Substance: BUDESONIDE\FORMOTEROL FUMARATE DIHYDRATE
  23. ACETAMINOPHEN. [Concomitant]
     Active Substance: ACETAMINOPHEN
  24. BYSTOLIC [Concomitant]
     Active Substance: NEBIVOLOL HYDROCHLORIDE
  25. DOXYCYCLINE. [Concomitant]
     Active Substance: DOXYCYCLINE
  26. SIMVASTATIN. [Concomitant]
     Active Substance: SIMVASTATIN
  27. ESTRADIOL. [Concomitant]
     Active Substance: ESTRADIOL
  28. NORCO [Concomitant]
     Active Substance: ACETAMINOPHEN\HYDROCODONE BITARTRATE
  29. HYDROMORPHONE [Concomitant]
     Active Substance: HYDROMORPHONE
  30. TOBRAMYCIN. [Concomitant]
     Active Substance: TOBRAMYCIN
  31. PULMICORT TURBUHALER [Concomitant]
     Active Substance: BUDESONIDE
  32. FENTANYL. [Concomitant]
     Active Substance: FENTANYL

REACTIONS (2)
  - Anaphylactic reaction [Unknown]
  - Dyspnoea [Unknown]
